FAERS Safety Report 7021453-9 (Version None)
Quarter: 2010Q3

REPORT INFORMATION
  Report Type: 
  Country: None (occurrence: None)
  Receive Date: 20100929
  Receipt Date: 20100915
  Transmission Date: 20110219
  Serious: Yes (Other)
  Sender: FDA-Public Use
  Company Number: CA-GENENTECH-296413

PATIENT
  Sex: Male
  Weight: 95 kg

DRUGS (13)
  1. XOLAIR [Suspect]
     Indication: ASTHMA
     Dosage: 375 MG, 1/MONTH
     Route: 058
     Dates: start: 20070927, end: 20100604
  2. XOLAIR [Suspect]
     Dosage: 375 MG, 1/MONTH
     Route: 058
     Dates: start: 20090925
  3. XOLAIR [Suspect]
     Dosage: 375 MG, Q2W
     Dates: start: 20091218, end: 20100604
  4. PREDNISONE [Concomitant]
     Indication: PRODUCT USED FOR UNKNOWN INDICATION
     Dosage: 7.5 MG, Q2D
  5. PREDNISONE [Concomitant]
     Dosage: 50 MG, UNK
  6. PREDNISONE [Concomitant]
     Dosage: 25 MG, UNK
  7. PREDNISONE [Concomitant]
     Dosage: 10 MG, UNK
  8. PREDNISONE [Concomitant]
     Dosage: 5 MG, UNK
  9. PREDNISONE [Concomitant]
  10. PREDNISONE [Concomitant]
  11. PREDNISONE [Concomitant]
  12. PREDNISONE [Concomitant]
  13. PREDNISONE [Concomitant]

REACTIONS (2)
  - DRUG INEFFECTIVE [None]
  - H1N1 INFLUENZA [None]
